FAERS Safety Report 8000415-9 (Version None)
Quarter: 2011Q4

REPORT INFORMATION
  Report Type: 
  Country: None (occurrence: None)
  Receive Date: 20111222
  Receipt Date: 20110121
  Transmission Date: 20120403
  Serious: No
  Sender: FDA-Public Use
  Company Number: US-BRISTOL-MYERS SQUIBB COMPANY-15503279

PATIENT
  Age: 55 Year
  Sex: Female

DRUGS (5)
  1. METFORMIN HCL [Concomitant]
  2. PRAVASTATIN [Suspect]
  3. VITAMIN D [Concomitant]
  4. CALCIUM CARBONATE [Concomitant]
  5. KLOR-CON [Concomitant]

REACTIONS (1)
  - HEADACHE [None]
